FAERS Safety Report 5383512-6 (Version None)
Quarter: 2007Q3

REPORT INFORMATION
  Report Type: 
  Country: None (occurrence: None)
  Receive Date: 20070706
  Receipt Date: 20070620
  Transmission Date: 20080115
  Serious: Yes (Hospitalization)
  Sender: FDA-Public Use
  Company Number: DSA_30150_2007

PATIENT
  Age: 81 Year
  Sex: Male

DRUGS (5)
  1. ENALAPRIL MALEATE [Suspect]
     Indication: CARDIAC FAILURE
     Dosage: (20 MG QD ORAL)
     Route: 048
     Dates: start: 20070430, end: 20070610
  2. LOSARTAN POTASSIUM [Suspect]
     Indication: CARDIAC FAILURE
     Dosage: (50 MG QD ORAL)
     Route: 048
     Dates: start: 20070604, end: 20070610
  3. CANRENONE (CANRENONE) 100 MG [Suspect]
     Indication: CARDIAC FAILURE
     Dosage: (100 MG QD ORAL)
     Route: 048
     Dates: start: 20070604, end: 20070610
  4. LASIX [Concomitant]
  5. LANOXIN [Concomitant]

REACTIONS (4)
  - ORTHOSTATIC HYPOTENSION [None]
  - OVERDOSE [None]
  - PANCREATOLITHIASIS [None]
  - RENAL FAILURE ACUTE [None]
